FAERS Safety Report 16242243 (Version 8)
Quarter: 2020Q1

REPORT INFORMATION
  Report Type: Report from Study
  Country: JP (occurrence: JP)
  Receive Date: 20190426
  Receipt Date: 20200120
  Transmission Date: 20200409
  Serious: Yes (Hospitalization, Other)
  Sender: FDA-Public Use
  Company Number: JP-ROCHE-2291578

PATIENT
  Age: 72 Year
  Sex: Male
  Weight: 64.4 kg

DRUGS (35)
  1. ALIMTA [Suspect]
     Active Substance: PEMETREXED DISODIUM
     Route: 041
     Dates: start: 20190423, end: 20190423
  2. POSTERISAN [ESCHERICHIA COLI] [Concomitant]
     Indication: HAEMORRHOIDS
     Route: 061
     Dates: start: 20190310
  3. NIFEDIPINE L [Concomitant]
     Active Substance: NIFEDIPINE
     Indication: HYPERTENSION
     Dosage: TWICE DURING A DAY AT THE SYMPTOM
     Route: 048
     Dates: start: 20190607
  4. MAGNESIUM OXIDE. [Concomitant]
     Active Substance: MAGNESIUM OXIDE
     Indication: RASH
     Route: 065
     Dates: start: 20190312
  5. HYDROCORTISONE BUTYRATE. [Concomitant]
     Active Substance: HYDROCORTISONE BUTYRATE
     Indication: HAEMORRHOIDS
  6. ATEZOLIZUMAB. [Suspect]
     Active Substance: ATEZOLIZUMAB
     Indication: NON-SMALL CELL LUNG CANCER STAGE IV
     Dosage: MOST RECENT DOSE ON 28/MAR/2019 (1200 MG)
     Route: 042
     Dates: start: 20190305, end: 20190305
  7. BEVACIZUMAB. [Suspect]
     Active Substance: BEVACIZUMAB
     Route: 041
     Dates: start: 20190806, end: 20190806
  8. BENZYLPENICILLIN SODIUM;PROCAINE BENZYLPENICILLIN [Concomitant]
  9. OLOPATADINE HYDROCHLORIDE. [Concomitant]
     Active Substance: OLOPATADINE HYDROCHLORIDE
     Indication: RASH
     Route: 048
     Dates: start: 20190313
  10. LOCOID [Concomitant]
     Active Substance: HYDROCORTISONE BUTYRATE
     Dosage: AT THE SYMPTOM
     Route: 061
     Dates: start: 20190313
  11. HYALEIN [Concomitant]
     Active Substance: HYALURONATE SODIUM
     Indication: DRY EYE
     Dosage: PROPER QUANTITY
     Route: 047
     Dates: start: 20190320
  12. CARBOPLATIN. [Suspect]
     Active Substance: CARBOPLATIN
     Indication: NON-SMALL CELL LUNG CANCER STAGE IV
     Dosage: CONCENTRATION-TIME CURVE (AUC) 6 MILLIGRAMS PER MILLILITER PER MINUTE (MG/ML/MIN) ON DAY 1 OF EACH 2
     Route: 041
     Dates: start: 20190305, end: 20190305
  13. ALIMTA [Suspect]
     Active Substance: PEMETREXED DISODIUM
     Route: 041
     Dates: start: 20190328, end: 20190328
  14. BEVACIZUMAB. [Suspect]
     Active Substance: BEVACIZUMAB
     Indication: NON-SMALL CELL LUNG CANCER STAGE IV
     Dosage: ON 28/MAR/2019 MOST RECENT DOSE OF BEVACIZUAMB (907 MG)
     Route: 041
     Dates: start: 20190305, end: 20190305
  15. BEVACIZUMAB. [Suspect]
     Active Substance: BEVACIZUMAB
     Route: 041
     Dates: start: 20190423, end: 20190423
  16. OLOPATADINE HYDROCHLORIDE. [Concomitant]
     Active Substance: OLOPATADINE HYDROCHLORIDE
     Indication: RASH
     Route: 065
     Dates: start: 20190313
  17. MIYA-BM [Concomitant]
     Active Substance: CLOSTRIDIUM BUTYRICUM SPORES STRAIN M-55
     Indication: PROPHYLAXIS AGAINST DIARRHOEA
     Route: 048
     Dates: start: 20190324
  18. SENNOSIDE [SENNOSIDE A+B] [Concomitant]
     Active Substance: SENNOSIDES A AND B
     Indication: CONSTIPATION
  19. CARBOPLATIN. [Suspect]
     Active Substance: CARBOPLATIN
     Dosage: AUC 4
     Route: 041
     Dates: start: 20190328, end: 20190328
  20. BEVACIZUMAB. [Suspect]
     Active Substance: BEVACIZUMAB
     Route: 041
     Dates: start: 20190827, end: 20190827
  21. BEVACIZUMAB. [Suspect]
     Active Substance: BEVACIZUMAB
     Route: 041
     Dates: start: 20190917, end: 20190917
  22. GENINAX [Suspect]
     Active Substance: GARENOXACIN MESYLATE
     Indication: INFECTION PROPHYLAXIS
     Dosage: DOSE INTERVAL UNCERTAINTY
     Route: 048
     Dates: start: 20190312
  23. ATEZOLIZUMAB. [Suspect]
     Active Substance: ATEZOLIZUMAB
     Route: 041
     Dates: start: 20190423, end: 20190423
  24. ALIMTA [Suspect]
     Active Substance: PEMETREXED DISODIUM
     Indication: LUNG NEOPLASM MALIGNANT
     Dosage: MOST RECENT DOSE : ON 28/MAR/2019 (658 MG)
     Route: 041
     Dates: start: 20190305, end: 20190305
  25. BEVACIZUMAB. [Suspect]
     Active Substance: BEVACIZUMAB
     Route: 041
     Dates: start: 20190328, end: 20190328
  26. GENINAX [Suspect]
     Active Substance: GARENOXACIN MESYLATE
     Indication: INFECTION
     Route: 048
     Dates: start: 20190408
  27. BEVACIZUMAB. [Suspect]
     Active Substance: BEVACIZUMAB
     Route: 041
     Dates: start: 20191015, end: 20191015
  28. BEVACIZUMAB. [Suspect]
     Active Substance: BEVACIZUMAB
     Route: 041
     Dates: start: 20191105, end: 20191105
  29. PREDONINE [Suspect]
     Active Substance: PREDNISOLONE
     Indication: TUBULOINTERSTITIAL NEPHRITIS
     Route: 048
     Dates: start: 20190621
  30. LOXONIN [Concomitant]
     Active Substance: LOXOPROFEN SODIUM
     Indication: CANCER PAIN
     Dosage: AS NEEDED
     Route: 061
     Dates: start: 20190307
  31. ACETAMINOPHEN. [Concomitant]
     Active Substance: ACETAMINOPHEN
     Indication: PAIN
     Route: 048
     Dates: start: 20190320
  32. ATEZOLIZUMAB. [Suspect]
     Active Substance: ATEZOLIZUMAB
     Route: 041
     Dates: start: 20190328, end: 20190328
  33. ANFLAVATE [Concomitant]
     Active Substance: BETAMETHASONE BUTYRATE PROPIONATE
     Indication: RASH
     Dosage: PROPER QUANTITY
     Route: 061
     Dates: start: 20190321
  34. MAGNESIUM OXIDE. [Concomitant]
     Active Substance: MAGNESIUM OXIDE
     Indication: CONSTIPATION
     Route: 065
     Dates: start: 20190307
  35. GENINAX [Concomitant]
     Active Substance: GARENOXACIN MESYLATE
     Indication: INFECTION PROPHYLAXIS
     Route: 048
     Dates: start: 20190312, end: 20190318

REACTIONS (6)
  - Febrile neutropenia [Recovered/Resolved]
  - Cataract [Recovering/Resolving]
  - Amylase increased [Recovered/Resolved]
  - Neutrophil count decreased [Recovered/Resolved]
  - Cataract [Recovering/Resolving]
  - Tubulointerstitial nephritis [Not Recovered/Not Resolved]

NARRATIVE: CASE EVENT DATE: 20190320
